FAERS Safety Report 25971276 (Version 2)
Quarter: 2025Q4

REPORT INFORMATION
  Report Type: Report from Study
  Country: CA (occurrence: CA)
  Receive Date: 20251028
  Receipt Date: 20251107
  Transmission Date: 20260118
  Serious: Yes (Other)
  Sender: HLS THERAPEUTICS
  Company Number: CA-HLS-202502279

PATIENT
  Sex: Male

DRUGS (2)
  1. CLOZARIL [Suspect]
     Active Substance: CLOZAPINE
     Indication: Product used for unknown indication
     Dosage: RESTARTED
     Route: 048
  2. CLOZARIL [Suspect]
     Active Substance: CLOZAPINE
     Indication: Product used for unknown indication
     Route: 048
     Dates: start: 20250827, end: 20250829

REACTIONS (6)
  - Hypersensitivity [Unknown]
  - Therapy interrupted [Unknown]
  - Rash [Unknown]
  - Dyspnoea [Unknown]
  - Eye swelling [Unknown]
  - Swelling face [Unknown]
